FAERS Safety Report 16014939 (Version 1)
Quarter: 2019Q1

REPORT INFORMATION
  Report Type: Spontaneous
  Country: FI (occurrence: FI)
  Receive Date: 20190227
  Receipt Date: 20190227
  Transmission Date: 20190418
  Serious: Yes (Other)
  Sender: FDA-Public Use
  Company Number: FI-ASTRAZENECA-2019SE29644

PATIENT
  Sex: Female

DRUGS (1)
  1. SEROQUEL XR [Suspect]
     Active Substance: QUETIAPINE FUMARATE
     Indication: DEPRESSION
     Route: 048
     Dates: start: 2009, end: 2016

REACTIONS (14)
  - Arthralgia [Unknown]
  - Hormone level abnormal [Unknown]
  - Self esteem decreased [Unknown]
  - Hypothyroidism [Unknown]
  - Restlessness [Unknown]
  - Hypopituitarism [Unknown]
  - Insomnia [Unknown]
  - Pain [Unknown]
  - Addison^s disease [Unknown]
  - Anxiety [Unknown]
  - General physical health deterioration [Unknown]
  - Back pain [Unknown]
  - Depression [Unknown]
  - Weight increased [Unknown]
